FAERS Safety Report 7986468-2 (Version None)
Quarter: 2011Q4

REPORT INFORMATION
  Report Type: 
  Country: None (occurrence: None)
  Receive Date: 20111216
  Receipt Date: 20110302
  Transmission Date: 20120403
  Serious: No
  Sender: FDA-Public Use
  Company Number: US-BRISTOL-MYERS SQUIBB COMPANY-15513732

PATIENT
  Age: 29 Year
  Sex: Female
  Weight: 57 kg

DRUGS (5)
  1. ABILIFY [Suspect]
     Indication: DEPRESSION
     Route: 048
     Dates: start: 20101227
  2. ABILIFY [Suspect]
     Indication: EATING DISORDER
     Route: 048
     Dates: start: 20101227
  3. PROZAC [Concomitant]
  4. ABILIFY [Suspect]
     Indication: OBSESSIVE-COMPULSIVE DISORDER
     Route: 048
     Dates: start: 20101227
  5. TRAZODONE HCL [Concomitant]

REACTIONS (4)
  - HYPOTENSION [None]
  - COGNITIVE DISORDER [None]
  - DRUG INEFFECTIVE [None]
  - FEELING ABNORMAL [None]
